FAERS Safety Report 14839971 (Version 1)
Quarter: 2018Q2

REPORT INFORMATION
  Report Type: Report from Study
  Country: BR (occurrence: BR)
  Receive Date: 20180503
  Receipt Date: 20180503
  Transmission Date: 20180711
  Serious: Yes (Other)
  Sender: FDA-Public Use
  Company Number: BR-REGENERON PHARMACEUTICALS, INC.-2018-22066

PATIENT

DRUGS (3)
  1. EYLEA [Suspect]
     Active Substance: AFLIBERCEPT
     Dosage: UNK (LAST INJECTION)
     Route: 031
     Dates: start: 20180328, end: 20180328
  2. PRESERVISION EYE VITAMIN AND MINERAL SUPPL. [Concomitant]
     Indication: PRODUCT USED FOR UNKNOWN INDICATION
     Dosage: 2 DF, QD
  3. EYLEA [Suspect]
     Active Substance: AFLIBERCEPT
     Indication: NEOVASCULAR AGE-RELATED MACULAR DEGENERATION
     Dosage: 1 DF, Q3MON (TOTAL OF AROUND 40 INJECTION AT OS AND 30 INJECTIONS AT OD)

REACTIONS (3)
  - Vitreous detachment [Not Recovered/Not Resolved]
  - Visual impairment [Recovered/Resolved]
  - Vitreous haemorrhage [Not Recovered/Not Resolved]

NARRATIVE: CASE EVENT DATE: 20180404
